FAERS Safety Report 8076856-0 (Version None)
Quarter: 2012Q1

REPORT INFORMATION
  Report Type: 
  Country: None (occurrence: None)
  Receive Date: 20120127
  Receipt Date: 20120119
  Transmission Date: 20120608
  Serious: Yes (Hospitalization, Other)
  Sender: FDA-Public Use
  Company Number: US-MERCK-1106USA01387

PATIENT
  Age: 67 Year
  Sex: Female
  Weight: 86 kg

DRUGS (5)
  1. FOSAMAX [Suspect]
     Route: 048
     Dates: start: 20080301, end: 20090601
  2. CALCIUM (UNSPECIFIED) [Concomitant]
     Route: 065
     Dates: start: 19990101
  3. ALENDRONATE SODIUM [Suspect]
     Indication: OSTEOPOROSIS
     Route: 048
     Dates: start: 20090701, end: 20101001
  4. FOSAMAX [Suspect]
     Indication: OSTEOPOROSIS
     Route: 048
     Dates: start: 19990101, end: 20010701
  5. FOSAMAX [Suspect]
     Route: 048
     Dates: start: 20010801, end: 20080201

REACTIONS (25)
  - OTITIS MEDIA [None]
  - JOINT EFFUSION [None]
  - DENERVATION ATROPHY [None]
  - VENTRICULAR EXTRASYSTOLES [None]
  - BACK PAIN [None]
  - DRUG ADMINISTRATION ERROR [None]
  - PLICA SYNDROME [None]
  - UPPER RESPIRATORY TRACT INFECTION [None]
  - BRONCHITIS [None]
  - FOOT FRACTURE [None]
  - EUSTACHIAN TUBE DYSFUNCTION [None]
  - OSTEOARTHRITIS [None]
  - PAIN IN EXTREMITY [None]
  - SYNOVIAL CYST [None]
  - ARTHRALGIA [None]
  - SACROILIITIS [None]
  - PERIPHERAL SENSORIMOTOR NEUROPATHY [None]
  - PRURITUS GENERALISED [None]
  - BURSITIS [None]
  - ARTHRITIS [None]
  - FEMUR FRACTURE [None]
  - ANAEMIA POSTOPERATIVE [None]
  - MENISCUS LESION [None]
  - GALLBLADDER DISORDER [None]
  - ACUTE SINUSITIS [None]
